FAERS Safety Report 7476062-4 (Version None)
Quarter: 2011Q2

REPORT INFORMATION
  Report Type: 
  Country: None (occurrence: None)
  Receive Date: 20110512
  Receipt Date: 20110509
  Transmission Date: 20111010
  Serious: Yes (Other)
  Sender: FDA-Public Use
  Company Number: IE-PFIZER INC-2011080266

PATIENT
  Age: 59 Year
  Sex: Male
  Weight: 76 kg

DRUGS (4)
  1. TEMAZEPAM [Concomitant]
     Dosage: 20 MG, 1X/DAY, AT NIGHT
     Route: 048
     Dates: start: 20101019
  2. SUTENT [Suspect]
     Indication: PANCREATIC NEOPLASM
     Dosage: 50 MG, UNK
     Route: 048
  3. INSULIN [Concomitant]
     Dosage: UNK
     Dates: start: 20100426
  4. CREON [Concomitant]
     Dosage: 1 DF AS DIRECTED
     Route: 048
     Dates: start: 20100416

REACTIONS (1)
  - HERPES ZOSTER [None]
